FAERS Safety Report 6176771-3 (Version None)
Quarter: 2009Q2

REPORT INFORMATION
  Report Type: 
  Country: None (occurrence: None)
  Receive Date: 20090501
  Receipt Date: 20090424
  Transmission Date: 20091009
  Serious: Yes (Hospitalization)
  Sender: FDA-Public Use
  Company Number: US-ELI_LILLY_AND_COMPANY-US200904005820

PATIENT
  Sex: Female

DRUGS (6)
  1. HUMALOG [Suspect]
     Indication: TYPE 1 DIABETES MELLITUS
     Dosage: 16 U, UNK
  2. HUMALOG [Suspect]
     Dosage: UNK, AS NEEDED
  3. LANTUS [Concomitant]
     Indication: TYPE 1 DIABETES MELLITUS
     Dosage: 12 U, UNK
  4. LANTUS [Concomitant]
     Dosage: 13 U, UNK
  5. LANTUS [Concomitant]
     Dosage: 11 U, UNK
  6. LANTUS [Concomitant]
     Dosage: UNK, AS NEEDED

REACTIONS (7)
  - BLOOD GLUCOSE INCREASED [None]
  - BLOOD KETONE BODY PRESENT [None]
  - BLOOD POTASSIUM DECREASED [None]
  - DIABETIC KETOACIDOSIS [None]
  - GLYCOSYLATED HAEMOGLOBIN INCREASED [None]
  - PYREXIA [None]
  - VOMITING [None]
